FAERS Safety Report 4383567-1 (Version None)
Quarter: 2004Q2

REPORT INFORMATION
  Report Type: 
  Country: None (occurrence: None)
  Receive Date: 20040614
  Receipt Date: 20040301
  Transmission Date: 20050107
  Serious: Yes (Other)
  Sender: FDA-Public Use
  Company Number: 2004198601US

PATIENT

DRUGS (1)
  1. ZYVOX [Suspect]
     Indication: CELLULITIS
     Dosage: 600 MG, BID, UNK
     Dates: start: 20040203, end: 20040206

REACTIONS (1)
  - PLATELET COUNT DECREASED [None]
